FAERS Safety Report 10070059 (Version 1)
Quarter: 2014Q2

REPORT INFORMATION
  Report Type: Spontaneous
  Country: US (occurrence: None)
  Receive Date: 20140409
  Receipt Date: 20140409
  Transmission Date: 20141212
  Serious: Yes (Hospitalization)
  Sender: FDA-Public Use
  Company Number: None

PATIENT
  Age: 73 Year
  Sex: Male
  Weight: 74 kg

DRUGS (2)
  1. LITHIUM [Suspect]
     Indication: ACUTE MYELOID LEUKAEMIA
     Dates: start: 20140228, end: 20140319
  2. TRETINOIN [Suspect]
     Indication: ACUTE MYELOID LEUKAEMIA
     Dates: start: 20140313, end: 20140318

REACTIONS (13)
  - Nausea [None]
  - Vomiting [None]
  - Diarrhoea [None]
  - Gastroenteritis [None]
  - Occult blood positive [None]
  - Oesophagitis ulcerative [None]
  - Gastritis erosive [None]
  - Gastric ulcer [None]
  - Haematemesis [None]
  - Duodenal ulcer [None]
  - Gait disturbance [None]
  - Dysstasia [None]
  - Oedema [None]
